FAERS Safety Report 8830961 (Version 2)
Quarter: 2012Q4

REPORT INFORMATION
  Report Type: 
  Country: US (occurrence: US)
  Receive Date: 20121009
  Receipt Date: 20121116
  Transmission Date: 20130627
  Serious: No
  Sender: FDA-Public Use
  Company Number: US-PFIZER INC-2012246313

PATIENT
  Age: 64 Year
  Sex: Female

DRUGS (1)
  1. ARTHROTEC [Suspect]
     Indication: BACK PAIN
     Dosage: 75 mg, 2x/day
     Route: 048
     Dates: end: 20111212

REACTIONS (1)
  - Abdominal pain [Recovered/Resolved]
